FAERS Safety Report 6525616-8 (Version None)
Quarter: 2010Q1

REPORT INFORMATION
  Report Type: 
  Country: None (occurrence: None)
  Receive Date: 20100104
  Receipt Date: 20091221
  Transmission Date: 20100710
  Serious: Yes (Other)
  Sender: FDA-Public Use
  Company Number: US-JNJCH-2009032864

PATIENT
  Age: 48 Year
  Sex: Male
  Weight: 74.8 kg

DRUGS (1)
  1. ROGAINE [Suspect]
     Indication: ALOPECIA
     Dosage: TEXT:1/2 A CAPFUL TWICE DAILY
     Route: 061
     Dates: start: 20091101, end: 20091219

REACTIONS (3)
  - HAEMORRHAGE [None]
  - OEDEMA PERIPHERAL [None]
  - SKIN CHAPPED [None]
